FAERS Safety Report 14703436 (Version 2)
Quarter: 2018Q3

REPORT INFORMATION
  Report Type: Spontaneous
  Country: DE (occurrence: DE)
  Receive Date: 20180402
  Receipt Date: 20180702
  Transmission Date: 20181010
  Serious: Yes (Life-Threatening, Hospitalization, Disabling, Other)
  Sender: FDA-Public Use
  Company Number: DE-MYLANLABS-2018M1022035

PATIENT
  Sex: Male
  Weight: 72 kg

DRUGS (12)
  1. DOMINAL                            /00498201/ [Concomitant]
     Indication: PRODUCT USED FOR UNKNOWN INDICATION
     Dosage: 80 MG, PRN
  2. LEPONEX [Suspect]
     Active Substance: CLOZAPINE
     Dosage: 150 MG, QD
  3. CLOZAPIN 1A PHARMA [Suspect]
     Active Substance: CLOZAPINE
     Indication: PRODUCT USED FOR UNKNOWN INDICATION
     Dosage: 800 MG, QD
     Route: 048
  4. CLOZAPIN 1A PHARMA [Suspect]
     Active Substance: CLOZAPINE
     Dosage: 600 MG, QD
     Route: 048
  5. CLOZAPIN 1A PHARMA [Suspect]
     Active Substance: CLOZAPINE
     Dosage: UNK
     Route: 048
  6. LEPONEX [Suspect]
     Active Substance: CLOZAPINE
     Dosage: 125 MG, QD
  7. CLOZAPIN 1A PHARMA [Suspect]
     Active Substance: CLOZAPINE
     Dosage: UNK
     Route: 048
  8. DIPIPERON [Concomitant]
     Active Substance: PIPAMPERONE
     Indication: PRODUCT USED FOR UNKNOWN INDICATION
     Dosage: 160 MG, PRN
  9. PANTOZOL [Concomitant]
     Active Substance: PANTOPRAZOLE SODIUM
     Indication: PRODUCT USED FOR UNKNOWN INDICATION
     Dosage: 20 MG, QD
  10. LEPONEX [Suspect]
     Active Substance: CLOZAPINE
     Indication: PRODUCT USED FOR UNKNOWN INDICATION
     Dosage: 125 MG, QD
  11. LEPONEX [Suspect]
     Active Substance: CLOZAPINE
     Dosage: UNK
  12. LEPONEX [Suspect]
     Active Substance: CLOZAPINE
     Dosage: 125 MG, QD

REACTIONS (12)
  - Fall [Recovered/Resolved with Sequelae]
  - Gliosis [Recovered/Resolved with Sequelae]
  - Tremor [Recovered/Resolved with Sequelae]
  - Retention cyst [Recovered/Resolved with Sequelae]
  - Dyskinesia [Recovered/Resolved with Sequelae]
  - Urinary incontinence [Recovered/Resolved with Sequelae]
  - Salivary hypersecretion [Recovered/Resolved with Sequelae]
  - Overdose [Unknown]
  - Hemiparesis [Recovered/Resolved with Sequelae]
  - Nuclear magnetic resonance imaging brain abnormal [Unknown]
  - Headache [Recovered/Resolved with Sequelae]
  - Tardive dyskinesia [Recovered/Resolved with Sequelae]

NARRATIVE: CASE EVENT DATE: 2012
